FAERS Safety Report 7686705-8 (Version None)
Quarter: 2011Q3

REPORT INFORMATION
  Report Type: 
  Country: None (occurrence: None)
  Receive Date: 20110816
  Receipt Date: 20110808
  Transmission Date: 20111222
  Serious: Yes (Other)
  Sender: FDA-Public Use
  Company Number: GB-CEPHALON-US022143

PATIENT
  Sex: Female
  Weight: 61 kg

DRUGS (1)
  1. MODAFINIL [Suspect]
     Dosage: WITHDRAWN AT WEEK 7/40 GESTATION
     Route: 048
     Dates: end: 20030401

REACTIONS (2)
  - MATERNAL EXPOSURE DURING PREGNANCY [None]
  - CAESAREAN SECTION [None]
